FAERS Safety Report 5618020-8 (Version None)
Quarter: 2008Q1

REPORT INFORMATION
  Report Type: 
  Country: None (occurrence: None)
  Receive Date: 20080207
  Receipt Date: 20070911
  Transmission Date: 20080703
  Serious: No
  Sender: FDA-Public Use
  Company Number: A0682169A

PATIENT
  Sex: Female

DRUGS (1)
  1. PAXIL [Suspect]
     Indication: EMOTIONAL DISORDER
     Route: 048

REACTIONS (5)
  - ABNORMAL BEHAVIOUR [None]
  - HOSTILITY [None]
  - HYPOACUSIS [None]
  - ILL-DEFINED DISORDER [None]
  - MOOD SWINGS [None]
